FAERS Safety Report 24362124 (Version 1)
Quarter: 2024Q3

REPORT INFORMATION
  Report Type: Spontaneous
  Country: GB (occurrence: GB)
  Receive Date: 20240925
  Receipt Date: 20240925
  Transmission Date: 20241017
  Serious: Yes (Other)
  Sender: TEVA
  Company Number: GB-MHRA-EMIS-1054-bed0855f-2f9e-4b61-99d6-0260e0dbe085

PATIENT
  Age: 51 Year
  Sex: Male
  Weight: 80 kg

DRUGS (12)
  1. DOXYCYCLINE [Suspect]
     Active Substance: DOXYCYCLINE\DOXYCYCLINE HYCLATE
     Dosage: TWO TO BE TAKEN ON THE FIRST DAY THEN ONE TO BE TAKEN EACH DAY
     Route: 065
     Dates: start: 20240828, end: 20240904
  2. Biatain Silicone [Concomitant]
     Dosage: TO BE APPLIED BY PRACTICE NURSE, DRESSING 12.5CM X 12.5CM (COLOPLAST LTD)
     Dates: start: 20240821
  3. TRAMADOL [Concomitant]
     Active Substance: TRAMADOL\TRAMADOL HYDROCHLORIDE
     Dates: start: 20240828
  4. TACROLIMUS [Concomitant]
     Active Substance: TACROLIMUS
     Indication: Asthma
     Dosage: APPLY THINLY TWICE A DAY 60G
     Dates: start: 20240624
  5. MORPHINE [Concomitant]
     Active Substance: MORPHINE
     Dosage: EVERY 4 TO 6 HOURS
     Dates: start: 20240828
  6. MIRTAZAPINE [Concomitant]
     Active Substance: MIRTAZAPINE
     Dosage: AT NIGHT
     Dates: start: 20240821
  7. CLARITHROMYCIN [Concomitant]
     Active Substance: CLARITHROMYCIN
     Dates: start: 20240822
  8. PROMETHAZINE HYDROCHLORIDE [Concomitant]
     Active Substance: PROMETHAZINE HYDROCHLORIDE
     Indication: Eczema
     Dosage: AT NIGHT
     Dates: start: 20240722, end: 20240820
  9. MOMETASONE [Concomitant]
     Active Substance: MOMETASONE
     Indication: Asthma
     Dosage: APPLY THINLY ONCE A DAY AS DIRECTED 100G
     Dates: start: 20240624
  10. SODIUM CHLORIDE [Concomitant]
     Active Substance: SODIUM CHLORIDE
     Dosage: AS DIRECTED BY PRACTICE NURSE FOR WOUND CARE
     Dates: start: 20240821
  11. OMEPRAZOLE [Concomitant]
     Active Substance: OMEPRAZOLE
     Dates: start: 20240829
  12. FOODLINK COMPLETE [Concomitant]
     Dosage: COMPACT POWDER 57G SACHETS (FLAVOUR NOT SPECIFIED)
     Dates: start: 20240827

REACTIONS (2)
  - Photosensitivity reaction [Recovering/Resolving]
  - Skin hyperpigmentation [Unknown]

NARRATIVE: CASE EVENT DATE: 20240828
